FAERS Safety Report 18716473 (Version 1)
Quarter: 2021Q1

REPORT INFORMATION
  Report Type: Spontaneous
  Country: US (occurrence: US)
  Receive Date: 20210107
  Receipt Date: 20210107
  Transmission Date: 20210419
  Serious: No
  Sender: FDA-Public Use
  Company Number: None

PATIENT
  Age: 57 Year
  Sex: Female
  Weight: 84 kg

DRUGS (1)
  1. ERENUMAB?AOOE (ERENUMAB?AOOE 140MG/ML AUTOINJECTOR, 1ML) [Suspect]
     Active Substance: ERENUMAB-AOOE
     Indication: MIGRAINE
     Route: 058
     Dates: start: 20190207, end: 20201125

REACTIONS (1)
  - Constipation [None]

NARRATIVE: CASE EVENT DATE: 20200914
